APPROVED DRUG PRODUCT: CALCITRIOL
Active Ingredient: CALCITRIOL
Strength: 0.25MCG
Dosage Form/Route: CAPSULE;ORAL
Application: A075765 | Product #001 | TE Code: AB
Applicant: TEVA PHARMACEUTICALS USA INC
Approved: Oct 12, 2001 | RLD: No | RS: No | Type: RX